FAERS Safety Report 7589126-1 (Version None)
Quarter: 2011Q3

REPORT INFORMATION
  Report Type: 
  Country: None (occurrence: None)
  Receive Date: 20110705
  Receipt Date: 20080720
  Transmission Date: 20111222
  Serious: Yes (Death, Other)
  Sender: FDA-Public Use
  Company Number: US-BAYER-200815323NA

PATIENT
  Sex: Female

DRUGS (28)
  1. EPOGEN [Concomitant]
  2. MIRAPEX [Concomitant]
  3. AMLODIPINE [Concomitant]
  4. HYDROXYCHLOROQUINE SULFATE [Concomitant]
  5. ZOLPIDEM [Concomitant]
  6. MAGNEVIST [Suspect]
     Indication: NUCLEAR MAGNETIC RESONANCE IMAGING
     Dosage: 20 ML, ONCE
     Route: 042
     Dates: start: 20050903, end: 20050903
  7. OMNISCAN [Suspect]
     Dosage: 20 ML, UNK
     Dates: start: 20050518, end: 20050518
  8. OMNISCAN [Suspect]
     Dosage: 20 ML
     Route: 042
     Dates: start: 20051028, end: 20051028
  9. MULTIHANCE [Suspect]
     Indication: NUCLEAR MAGNETIC RESONANCE IMAGING
     Route: 042
  10. KLONOPIN [Concomitant]
  11. OPTIMARK [Suspect]
     Indication: NUCLEAR MAGNETIC RESONANCE IMAGING
     Route: 042
  12. PROHANCE [Suspect]
     Indication: NUCLEAR MAGNETIC RESONANCE IMAGING
     Route: 042
  13. FUROSEMIDE [Concomitant]
  14. IRON [CITRIC ACID,FERROUS SULFATE] [Concomitant]
  15. ZEGERID [Concomitant]
  16. OMNISCAN [Suspect]
     Indication: NUCLEAR MAGNETIC RESONANCE IMAGING
     Dosage: 20 ML, ONCE
     Route: 042
     Dates: start: 20021127, end: 20021127
  17. OMNISCAN [Suspect]
     Dosage: 20 ML
     Route: 042
     Dates: start: 20060125, end: 20060125
  18. CELLCEPT [Concomitant]
  19. METOPROLOL TARTRATE [Concomitant]
  20. HUMALOG [Concomitant]
  21. PROTONIX [Concomitant]
  22. TACROLIMUS [Concomitant]
  23. RENAGEL [Concomitant]
  24. SIMVASTATIN [Concomitant]
  25. ARANESP [Concomitant]
  26. PROCRIT [Concomitant]
  27. CLONIDINE [Concomitant]
  28. FLUOXETINE HCL [Concomitant]

REACTIONS (12)
  - INJURY [None]
  - FIBROSIS [None]
  - CARDIAC DISORDER [None]
  - GENERAL PHYSICAL HEALTH DETERIORATION [None]
  - MUSCLE CONTRACTURE [None]
  - PAIN [None]
  - ANXIETY [None]
  - NEPHROGENIC SYSTEMIC FIBROSIS [None]
  - EMOTIONAL DISTRESS [None]
  - SCAR [None]
  - LEG AMPUTATION [None]
  - PULMONARY OEDEMA [None]
